FAERS Safety Report 17428583 (Version 1)
Quarter: 2020Q1

REPORT INFORMATION
  Report Type: Spontaneous
  Country: US (occurrence: US)
  Receive Date: 20200217
  Receipt Date: 20200217
  Transmission Date: 20200409
  Serious: No
  Sender: FDA-Public Use
  Company Number: US-HERON THERAPEUTICS, INC-HRTX-2020-000613

PATIENT
  Sex: Female

DRUGS (1)
  1. CINVANTI [Suspect]
     Active Substance: APREPITANT
     Indication: PRODUCT USED FOR UNKNOWN INDICATION
     Dosage: 130 MG, SINGLE
     Route: 042

REACTIONS (1)
  - Headache [Unknown]
